FAERS Safety Report 5836469-5 (Version None)
Quarter: 2008Q3

REPORT INFORMATION
  Report Type: 
  Country: None (occurrence: None)
  Receive Date: 20080807
  Receipt Date: 20080730
  Transmission Date: 20090109
  Serious: Yes (Other)
  Sender: FDA-Public Use
  Company Number: PHFR2006GB03015

PATIENT
  Sex: Female
  Weight: 90 kg

DRUGS (8)
  1. TRILEPTAL [Suspect]
     Indication: EPILEPSY
     Dosage: 150MG X 3 MORNING + 600MG AT NIGHT
     Dates: start: 20050324
  2. FERROUS SULFATE TAB [Concomitant]
     Dosage: UNK
     Dates: start: 20070501
  3. KONAKION [Concomitant]
     Dosage: 10 MG, QD
     Dates: start: 20070525
  4. LAMOTRIGINE [Concomitant]
     Dosage: UNK
     Dates: start: 20070402
  5. TRIMOVATE [Concomitant]
     Dosage: UNK
     Dates: start: 20061130
  6. FOLIC ACID [Concomitant]
     Dosage: 5 MG, QD
     Dates: start: 20061123
  7. CLONAZEPAM [Concomitant]
     Dosage: UNK
     Dates: start: 20061003
  8. LAMICTAL [Concomitant]
     Dosage: UNK
     Dates: start: 20061221, end: 20070314

REACTIONS (4)
  - CAESAREAN SECTION [None]
  - DRUG EXPOSURE DURING PREGNANCY [None]
  - NORMAL NEWBORN [None]
  - THERAPEUTIC RESPONSE DECREASED [None]
